FAERS Safety Report 24294377 (Version 1)
Quarter: 2024Q3

REPORT INFORMATION
  Report Type: Spontaneous
  Country: US (occurrence: None)
  Receive Date: 20240906
  Receipt Date: 20240906
  Transmission Date: 20241016
  Serious: Yes (Life-Threatening, Other)
  Sender: ASTRAZENECA
  Company Number: 2024A201801

PATIENT
  Age: 60 Year
  Sex: Female

DRUGS (3)
  1. QUETIAPINE [Suspect]
     Active Substance: QUETIAPINE
     Route: 048
  2. GABAPENTIN [Suspect]
     Active Substance: GABAPENTIN
  3. BUPROPION [Suspect]
     Active Substance: BUPROPION

REACTIONS (5)
  - Intentional overdose [Unknown]
  - Coma [Unknown]
  - Areflexia [Unknown]
  - Hypotension [Unknown]
  - Intentional product misuse [Unknown]
